FAERS Safety Report 10705112 (Version 1)
Quarter: 2015Q1

REPORT INFORMATION
  Report Type: Spontaneous
  Country: US (occurrence: None)
  Receive Date: 20150108
  Receipt Date: 20150108
  Transmission Date: 20150721
  Serious: Yes (Hospitalization)
  Sender: FDA-Public Use
  Company Number: 2014-US-011995

PATIENT
  Age: 34 Year
  Sex: Male

DRUGS (2)
  1. CODEINE [Suspect]
     Active Substance: CODEINE
     Indication: COUGH
  2. XYREM [Suspect]
     Active Substance: SODIUM OXYBATE
     Indication: SOMNOLENCE
     Route: 048
     Dates: start: 201311, end: 201312

REACTIONS (5)
  - Off label use [None]
  - Malaise [None]
  - Feeling abnormal [None]
  - Bronchitis [None]
  - Pharyngitis streptococcal [None]

NARRATIVE: CASE EVENT DATE: 201409
